FAERS Safety Report 4843474-4 (Version None)
Quarter: 2005Q4

REPORT INFORMATION
  Report Type: 
  Country: None (occurrence: None)
  Receive Date: 20051101
  Receipt Date: 20050719
  Transmission Date: 20060501
  Serious: Yes (Hospitalization)
  Sender: FDA-Public Use
  Company Number: DSA_26767_2005

PATIENT
  Age: 80 Year
  Sex: Male

DRUGS (22)
  1. ATIVAN [Suspect]
     Indication: MUSCLE SPASMS
     Dosage: DF
     Dates: start: 20050614, end: 20050624
  2. INFLIXIMAB [Suspect]
     Indication: CACHEXIA
     Dosage: DF IV
     Route: 042
     Dates: start: 20050620
  3. PLACEBO [Suspect]
     Indication: CACHEXIA
     Dosage: DF IV
     Route: 042
     Dates: start: 20050620
  4. REGLAN [Suspect]
     Indication: HICCUPS
     Dosage: DF
     Dates: start: 20050620, end: 20050624
  5. GEMCITABINE [Concomitant]
  6. MEGACE [Concomitant]
  7. ATENOLOL [Concomitant]
  8. ZOCOR [Concomitant]
  9. GLUCOPHAGE [Concomitant]
  10. ASPIRIN [Concomitant]
  11. DECADRON [Concomitant]
  12. ZOFRAN [Concomitant]
  13. PANCREASE [Concomitant]
  14. LISINOPRIL [Concomitant]
  15. PROCRIT [Concomitant]
  16. SENOKOT [Concomitant]
  17. COLACE [Concomitant]
  18. RANITIDINE [Concomitant]
  19. MOBIC [Concomitant]
  20. GLUCOSAMINE CHONDROITIN [Concomitant]
  21. LEVAQUIN [Concomitant]
  22. ZOLOFT [Concomitant]

REACTIONS (5)
  - ALANINE AMINOTRANSFERASE INCREASED [None]
  - ASPARTATE AMINOTRANSFERASE INCREASED [None]
  - BLOOD BILIRUBIN INCREASED [None]
  - CONFUSIONAL STATE [None]
  - DYSARTHRIA [None]
